FAERS Safety Report 7773184-5 (Version None)
Quarter: 2011Q3

REPORT INFORMATION
  Report Type: 
  Country: None (occurrence: None)
  Receive Date: 20110922
  Receipt Date: 20110628
  Transmission Date: 20111222
  Serious: Yes (Disabling)
  Sender: FDA-Public Use
  Company Number: US-ASTRAZENECA-2011SE31049

PATIENT
  Age: 503 Month
  Sex: Male

DRUGS (6)
  1. SEROQUEL XR [Suspect]
     Indication: SCHIZOPHRENIA
     Route: 048
  2. CAMPRAL [Concomitant]
     Indication: ALCOHOLISM
     Dates: start: 20110310
  3. SEROQUEL XR [Suspect]
     Indication: BIPOLAR DISORDER
     Route: 048
  4. SEROQUEL XR [Suspect]
     Route: 048
     Dates: start: 20101021, end: 20110501
  5. CYMBALTA [Concomitant]
     Indication: DEPRESSION
     Route: 048
     Dates: start: 20110415, end: 20110501
  6. SEROQUEL XR [Suspect]
     Route: 048
     Dates: start: 20101021, end: 20110501

REACTIONS (3)
  - PSYCHOTIC DISORDER [None]
  - PRIAPISM [None]
  - ERECTILE DYSFUNCTION [None]
